FAERS Safety Report 5594127-9 (Version None)
Quarter: 2008Q1

REPORT INFORMATION
  Report Type: 
  Country: None (occurrence: None)
  Receive Date: 20080115
  Receipt Date: 20080107
  Transmission Date: 20080703
  Serious: Yes (Hospitalization)
  Sender: FDA-Public Use
  Company Number: CIO08000322

PATIENT
  Sex: Male

DRUGS (1)
  1. NYQUIL CHILDREN'S COLD/COUGH RELIEF, CHERRY FLAVOR (CHLORPHENAMINE MAL [Suspect]
     Dosage: ORAL
     Route: 048

REACTIONS (1)
  - ADVERSE DRUG REACTION [None]
